FAERS Safety Report 13036134 (Version 4)
Quarter: 2017Q2

REPORT INFORMATION
  Report Type: Spontaneous
  Country: JP (occurrence: JP)
  Receive Date: 20161216
  Receipt Date: 20170407
  Transmission Date: 20170830
  Serious: Yes (Hospitalization, Other)
  Sender: FDA-Public Use
  Company Number: JP-AMGEN-JPNSP2016178825

PATIENT
  Age: 69 Year
  Sex: Female
  Weight: 31 kg

DRUGS (14)
  1. FLUOROURACIL. [Concomitant]
     Active Substance: FLUOROURACIL
     Indication: COLON CANCER STAGE IV
     Dosage: UNK
     Route: 042
  2. FLUOROURACIL. [Concomitant]
     Active Substance: FLUOROURACIL
     Dosage: UNK
     Route: 042
     Dates: start: 20140213
  3. RILMAZAFONE HYDROCHLORIDE [Concomitant]
     Active Substance: RILMAZAFONE HYDROCHLORIDE
     Indication: INSOMNIA
     Dosage: 1 MG, QD
     Route: 048
     Dates: start: 20110614, end: 20151130
  4. MINOMYCIN [Suspect]
     Active Substance: MINOCYCLINE HYDROCHLORIDE
     Indication: PROPHYLAXIS
     Dosage: 50 MG, BID
     Route: 048
     Dates: start: 20140213, end: 20150813
  5. CALCIUM LEVOFOLINATE [Concomitant]
     Active Substance: LEVOLEUCOVORIN CALCIUM
     Dosage: UNK
     Route: 041
  6. GOSHAJINKIGAN [Concomitant]
     Active Substance: HERBALS
     Indication: BACK PAIN
     Dosage: 2.5 G, TID
     Route: 048
     Dates: start: 20111005, end: 20160212
  7. METHYCOBAL [Concomitant]
     Active Substance: METHYLCOBALAMIN
     Indication: HYPOAESTHESIA
     Dosage: 500 MUG, TID
     Route: 048
     Dates: start: 20120214, end: 20160222
  8. KAMISHOYOSAN                       /07987101/ [Concomitant]
     Active Substance: HERBALS
     Indication: ANXIETY
     Dosage: 2.5 G, TID
     Route: 048
     Dates: start: 20130712, end: 20141215
  9. VECTIBIX [Suspect]
     Active Substance: PANITUMUMAB
     Indication: COLON CANCER STAGE IV
     Dosage: 230 MG, Q2WK
     Route: 041
     Dates: start: 20140213, end: 20150110
  10. GOSHAJINKIGAN [Concomitant]
     Active Substance: HERBALS
     Indication: HYPOAESTHESIA
  11. CLOTIAZEPAM [Concomitant]
     Active Substance: CLOTIAZEPAM
     Indication: HYPOAESTHESIA
     Dosage: 5 MG, BID
     Route: 048
     Dates: start: 20120518, end: 20160222
  12. CLOTIAZEPAM [Concomitant]
     Active Substance: CLOTIAZEPAM
     Indication: INSOMNIA
  13. IRINOTECAN HYDROCHLORIDE. [Concomitant]
     Active Substance: IRINOTECAN HYDROCHLORIDE
     Indication: COLON CANCER STAGE IV
     Dosage: UNK
     Route: 041
     Dates: start: 20140213
  14. CALCIUM LEVOFOLINATE [Concomitant]
     Active Substance: LEVOLEUCOVORIN CALCIUM
     Indication: COLON CANCER STAGE IV
     Dosage: UNK
     Route: 041
     Dates: start: 20140213

REACTIONS (2)
  - Vasculitic rash [Recovered/Resolved]
  - Purpura [Recovered/Resolved]

NARRATIVE: CASE EVENT DATE: 20150120
